FAERS Safety Report 4570726-8 (Version None)
Quarter: 2005Q1

REPORT INFORMATION
  Report Type: 
  Country: None (occurrence: None)
  Receive Date: 20050202
  Receipt Date: 20050120
  Transmission Date: 20050727
  Serious: Yes (Hospitalization)
  Sender: FDA-Public Use
  Company Number: HQWYE743120JAN05

PATIENT
  Age: 24 Year
  Sex: Female

DRUGS (6)
  1. ADVIL [Suspect]
     Dosage: 1 TABLET 3X PER 1 DAY, ORAL
     Route: 048
     Dates: start: 20040803, end: 20040810
  2. ACETAMINOPHEN [Suspect]
     Dosage: ONE TABLET ^ONE DEMAND^
     Dates: start: 20040101, end: 20040810
  3. DI-ANTALVIC (DEXTROPROPOXYPHENE HYDROCHLORIDE/PARACETAMOL, ) [Suspect]
     Dosage: 3 TABLET 1X PER 1 DAY
     Dates: start: 20040101, end: 20040810
  4. PLAQUENIL [Suspect]
     Indication: SYSTEMIC LUPUS ERYTHEMATOSUS
     Dosage: 2 TABLET 1X PER 1 DAY
     Dates: start: 19980101, end: 20010101
  5. PLAQUENIL [Suspect]
     Indication: SYSTEMIC LUPUS ERYTHEMATOSUS
     Dosage: 2 TABLET 1X PER 1 DAY
     Dates: start: 20040501, end: 20040810
  6. PREDNISOLONE [Suspect]
     Dosage: 15 MG 1X PER 1 DAY
     Dates: start: 20040101

REACTIONS (7)
  - ALANINE AMINOTRANSFERASE INCREASED [None]
  - ASPARTATE AMINOTRANSFERASE INCREASED [None]
  - BILIRUBIN CONJUGATED INCREASED [None]
  - BLOOD ALKALINE PHOSPHATASE INCREASED [None]
  - BLOOD BILIRUBIN INCREASED [None]
  - GAMMA-GLUTAMYLTRANSFERASE INCREASED [None]
  - JAUNDICE [None]
